FAERS Safety Report 11138782 (Version 1)
Quarter: 2015Q2

REPORT INFORMATION
  Report Type: Spontaneous
  Country: US (occurrence: None)
  Receive Date: 20150526
  Receipt Date: 20150526
  Transmission Date: 20150821
  Serious: No
  Sender: FDA-Public Use
  Company Number: None

PATIENT
  Age: 56 Year
  Sex: Female

DRUGS (1)
  1. HUMIRA [Suspect]
     Active Substance: ADALIMUMAB
     Indication: ANKYLOSING SPONDYLITIS
     Dosage: 40MG Q 14 DAYS SUBCUTANEOUS
     Route: 058

REACTIONS (2)
  - Neuralgia [None]
  - Pruritus [None]

NARRATIVE: CASE EVENT DATE: 20150521
